FAERS Safety Report 11817903 (Version 2)
Quarter: 2016Q2

REPORT INFORMATION
  Report Type: Spontaneous
  Country: US (occurrence: US)
  Receive Date: 20151210
  Receipt Date: 20160504
  Transmission Date: 20160815
  Serious: Yes (Other)
  Sender: FDA-Public Use
  Company Number: US-JNJFOC-20151112176

PATIENT
  Age: 36 Year
  Sex: Male

DRUGS (2)
  1. RISPERDAL [Suspect]
     Active Substance: RISPERIDONE
     Indication: BIPOLAR DISORDER
     Dosage: 1.0-2.0 MG
     Route: 048
     Dates: start: 2013, end: 2015
  2. RISPERDAL [Suspect]
     Active Substance: RISPERIDONE
     Indication: SCHIZOPHRENIA
     Dosage: 1.0-2.0 MG
     Route: 048
     Dates: start: 2013, end: 2015

REACTIONS (6)
  - Insulin resistance [Unknown]
  - Gynaecomastia [Unknown]
  - Hyperprolactinaemia [Unknown]
  - Testicular atrophy [Unknown]
  - Obesity [Unknown]
  - Hypogonadism [Unknown]

NARRATIVE: CASE EVENT DATE: 201401
